FAERS Safety Report 25223270 (Version 1)
Quarter: 2025Q2

REPORT INFORMATION
  Report Type: Report from Study
  Country: CA (occurrence: CA)
  Receive Date: 20250422
  Receipt Date: 20250422
  Transmission Date: 20250716
  Serious: Yes (Death, Other)
  Sender: DR REDDYS
  Company Number: CA-DRL-USA-CAN/2025/04/005313

PATIENT
  Age: 72 Year
  Sex: Male

DRUGS (1)
  1. ZOLEDRONIC ACID [Suspect]
     Active Substance: ZOLEDRONIC ACID
     Indication: Osteoporosis
     Dosage: 5MG/100ML Q1 YEAR
     Dates: start: 20240126, end: 20240126

REACTIONS (1)
  - Death [Fatal]

NARRATIVE: CASE EVENT DATE: 20250313
